FAERS Safety Report 15948267 (Version 4)
Quarter: 2019Q2

REPORT INFORMATION
  Report Type: Spontaneous
  Country: US (occurrence: US)
  Receive Date: 20190211
  Receipt Date: 20190401
  Transmission Date: 20190711
  Serious: Yes (Other)
  Sender: FDA-Public Use
  Company Number: US-SA-2019SA037349

PATIENT
  Age: 43 Year
  Sex: Female

DRUGS (3)
  1. DUPIXENT [Suspect]
     Active Substance: DUPILUMAB
     Indication: DERMATITIS ATOPIC
     Dosage: 300 MG,UNK
     Route: 058
     Dates: start: 20180927
  2. ZYRTEC [Concomitant]
     Active Substance: CETIRIZINE HYDROCHLORIDE
     Indication: PRURITUS
     Dosage: 10 MG, PRN
     Dates: start: 2018
  3. VOLTARENE (DICLOFENAC SODIUM) [Concomitant]
     Active Substance: DICLOFENAC SODIUM
     Indication: ARTHRITIS
     Dosage: 75 MG, QD
     Route: 048
     Dates: start: 201803

REACTIONS (6)
  - Dermatitis atopic [Recovered/Resolved]
  - Pruritus [Recovered/Resolved]
  - Neck pain [Recovered/Resolved]
  - Rash [Recovered/Resolved]
  - Food allergy [Recovered/Resolved]
  - Polymenorrhoea [Recovered/Resolved]

NARRATIVE: CASE EVENT DATE: 201901
